FAERS Safety Report 5389267-3 (Version None)
Quarter: 2007Q3

REPORT INFORMATION
  Report Type: 
  Country: None (occurrence: None)
  Receive Date: 20070717
  Receipt Date: 20070716
  Transmission Date: 20080115
  Serious: Yes (Hospitalization)
  Sender: FDA-Public Use
  Company Number: B0479371A

PATIENT
  Sex: Female

DRUGS (1)
  1. CEFUROXIME [Suspect]
     Dosage: 250MG UNKNOWN
     Route: 048
     Dates: start: 20070101

REACTIONS (9)
  - ABDOMINAL PAIN [None]
  - ARTHROPATHY [None]
  - COLITIS [None]
  - DIARRHOEA [None]
  - ENTERITIS [None]
  - NAUSEA [None]
  - PURULENT DISCHARGE [None]
  - PYREXIA [None]
  - WEIGHT DECREASED [None]
